FAERS Safety Report 24669468 (Version 11)
Quarter: 2025Q3

REPORT INFORMATION
  Report Type: Spontaneous
  Country: EU (occurrence: EU)
  Receive Date: 20241127
  Receipt Date: 20250725
  Transmission Date: 20251021
  Serious: Yes (Other)
  Sender: SANDOZ
  Company Number: EU-HALEON-2209238

PATIENT
  Age: 247 Day
  Sex: Male
  Weight: 2.49 kg

DRUGS (14)
  1. AMPICILLIN SODIUM [Suspect]
     Active Substance: AMPICILLIN SODIUM
     Indication: Product used for unknown indication
     Dosage: 1.5 G EVERY 6 H
     Route: 064
  2. AMPICILLIN SODIUM [Suspect]
     Active Substance: AMPICILLIN SODIUM
     Dosage: 3 G EVERY 6 H
     Route: 064
  3. FERRIC CARBOXYMALTOSE [Suspect]
     Active Substance: FERRIC CARBOXYMALTOSE
     Indication: Anaemia
     Route: 064
  4. FERRIC CARBOXYMALTOSE [Suspect]
     Active Substance: FERRIC CARBOXYMALTOSE
     Route: 064
  5. FERRIC CARBOXYMALTOSE [Suspect]
     Active Substance: FERRIC CARBOXYMALTOSE
     Route: 064
  6. FERRIC CARBOXYMALTOSE [Suspect]
     Active Substance: FERRIC CARBOXYMALTOSE
     Route: 064
  7. GENTAMICIN [Suspect]
     Active Substance: GENTAMICIN
     Indication: Product used for unknown indication
     Dosage: 80 MG EVERY 6 H
     Route: 064
  8. IMIPENEM [Suspect]
     Active Substance: IMIPENEM
     Indication: Pyrexia
     Route: 064
  9. IMIPENEM [Suspect]
     Active Substance: IMIPENEM
     Route: 065
  10. IMIPENEM [Suspect]
     Active Substance: IMIPENEM
     Route: 065
  11. IMIPENEM [Suspect]
     Active Substance: IMIPENEM
     Route: 065
  12. IMIPENEM [Suspect]
     Active Substance: IMIPENEM
     Route: 065
  13. ACETAMINOPHEN [Suspect]
     Active Substance: ACETAMINOPHEN
     Indication: Pyrexia
     Route: 064
  14. ACETAMINOPHEN [Suspect]
     Active Substance: ACETAMINOPHEN
     Indication: Pyrexia
     Route: 064

REACTIONS (9)
  - Neonatal respiratory distress syndrome [Recovered/Resolved]
  - Opisthotonus [Recovered/Resolved]
  - Premature baby [Unknown]
  - Condition aggravated [Recovered/Resolved]
  - Irritability [Recovered/Resolved]
  - Vasculitis [Recovered/Resolved]
  - Atrial septal defect [Recovered/Resolved]
  - Atrial septal defect [Recovered/Resolved]
  - Foetal exposure during pregnancy [Unknown]
